FAERS Safety Report 7638142-X (Version None)
Quarter: 2011Q3

REPORT INFORMATION
  Report Type: 
  Country: None (occurrence: None)
  Receive Date: 20110722
  Receipt Date: 20110722
  Transmission Date: 20111222
  Serious: Yes (Hospitalization)
  Sender: FDA-Public Use
  Company Number: None

PATIENT
  Sex: Male
  Weight: 55.9 kg

DRUGS (3)
  1. PACLITAXEL [Suspect]
     Dosage: 336  MG
     Dates: end: 20110711
  2. BEVACIZUMAB (RHUMAB VEGF) [Suspect]
     Dosage: 840 MG
     Dates: end: 20110711
  3. CARBOPLATIN [Suspect]
     Dosage: 523 MG
     Dates: end: 20110711

REACTIONS (5)
  - DEHYDRATION [None]
  - HYPONATRAEMIA [None]
  - ASTHENIA [None]
  - DIARRHOEA [None]
  - HYPOALBUMINAEMIA [None]
